FAERS Safety Report 20469749 (Version 2)
Quarter: 2022Q3

REPORT INFORMATION
  Report Type: Report from Study
  Country: US (occurrence: US)
  Receive Date: 20220214
  Receipt Date: 20220812
  Transmission Date: 20221026
  Serious: No
  Sender: FDA-Public Use
  Company Number: US-PHARMACOVIGILANCE-US-KAD-21-00335

PATIENT
  Sex: Female

DRUGS (3)
  1. REZUROCK [Suspect]
     Active Substance: BELUMOSUDIL
     Indication: Chronic graft versus host disease
     Dosage: 200 MILLIGRAM, QD, AT BEDTIME
     Route: 065
     Dates: start: 20210812
  2. REZUROCK [Suspect]
     Active Substance: BELUMOSUDIL
     Dosage: 200 MILLIGRAM, QD, AT BEDTIME
     Route: 065
     Dates: start: 20210812, end: 202205
  3. JAKAFI [Concomitant]
     Active Substance: RUXOLITINIB
     Indication: Chronic graft versus host disease
     Dosage: UNK

REACTIONS (2)
  - Dizziness [Unknown]
  - Somnolence [Unknown]
